FAERS Safety Report 6932927-0 (Version None)
Quarter: 2010Q3

REPORT INFORMATION
  Report Type: 
  Country: None (occurrence: None)
  Receive Date: 20100819
  Receipt Date: 20100113
  Transmission Date: 20110219
  Serious: No
  Sender: FDA-Public Use
  Company Number: US-TYCO HEALTHCARE/MALLINCKRODT-T201000325

PATIENT
  Age: 25 Year
  Sex: Female

DRUGS (1)
  1. CONRAY [Suspect]
     Dosage: 2 ML, SINGLE
     Route: 058
     Dates: start: 20100113, end: 20100113

REACTIONS (2)
  - INCORRECT ROUTE OF DRUG ADMINISTRATION [None]
  - WRONG DRUG ADMINISTERED [None]
